FAERS Safety Report 7992165-X (Version None)
Quarter: 2011Q4

REPORT INFORMATION
  Report Type: 
  Country: None (occurrence: None)
  Receive Date: 20111219
  Receipt Date: 20110824
  Transmission Date: 20120403
  Serious: Yes (Hospitalization)
  Sender: FDA-Public Use
  Company Number: US-ASTRAZENECA-2011SE28560

PATIENT
  Age: 75 Year
  Sex: Male
  Weight: 61.2 kg

DRUGS (8)
  1. FERROUS SULFATE TAB [Concomitant]
  2. PLAVIX [Concomitant]
  3. RANITIDINE [Concomitant]
  4. ASPIRIN [Concomitant]
  5. IBUPROFEN [Concomitant]
  6. CARVEDILOL [Concomitant]
  7. TRAMADOL HCL [Concomitant]
  8. CRESTOR [Suspect]
     Route: 048

REACTIONS (1)
  - HYPERLIPIDAEMIA [None]
